FAERS Safety Report 9402852 (Version 1)
Quarter: 2013Q3

REPORT INFORMATION
  Report Type: Spontaneous
  Country: US (occurrence: US)
  Receive Date: 20130716
  Receipt Date: 20130716
  Transmission Date: 20140515
  Serious: Yes (Other)
  Sender: FDA-Public Use
  Company Number: US-FRI-1000046642

PATIENT
  Age: 44 Year
  Sex: Female

DRUGS (5)
  1. LINZESS [Suspect]
     Indication: IRRITABLE BOWEL SYNDROME
     Dosage: 290 MCG
     Route: 048
     Dates: start: 201306, end: 201306
  2. XANAX [Concomitant]
  3. SEROQUEL [Concomitant]
  4. LUNESTA [Concomitant]
     Indication: INSOMNIA
  5. LAMICTAL [Concomitant]

REACTIONS (3)
  - Loss of consciousness [Recovered/Resolved]
  - Hypotension [Recovered/Resolved]
  - Diarrhoea [Recovered/Resolved]
